FAERS Safety Report 21704702 (Version 1)
Quarter: 2022Q4

REPORT INFORMATION
  Report Type: Spontaneous
  Country: US (occurrence: US)
  Receive Date: 20221209
  Receipt Date: 20221209
  Transmission Date: 20230113
  Serious: No
  Sender: FDA-Public Use
  Company Number: US-drreddys-SPO/USA/22/0157877

PATIENT
  Age: 24 Year
  Sex: Female

DRUGS (1)
  1. ACCUTANE [Suspect]
     Active Substance: ISOTRETINOIN
     Indication: Acne
     Dosage: RMA ISSUE DATE.15/03/2022, 09:35:28 AM,  18/04/2022, 05:45:02 PM, 16/05/2022, 05:03:36 PM, 16/06/202
     Dates: start: 20220311

REACTIONS (2)
  - Lipids increased [Unknown]
  - Blood cholesterol increased [Unknown]
